FAERS Safety Report 8238074-2 (Version None)
Quarter: 2012Q1

REPORT INFORMATION
  Report Type: 
  Country: None (occurrence: None)
  Receive Date: 20120327
  Receipt Date: 20120320
  Transmission Date: 20120608
  Serious: Yes (Death)
  Sender: FDA-Public Use
  Company Number: US-VIIV HEALTHCARE LIMITED-A0971194A

PATIENT
  Sex: Male

DRUGS (1)
  1. LEXIVA [Suspect]
     Indication: PRODUCT USED FOR UNKNOWN INDICATION
     Dosage: 700MG TWICE PER DAY
     Dates: start: 20110401

REACTIONS (1)
  - DEATH [None]
